FAERS Safety Report 6722869-8 (Version None)
Quarter: 2010Q2

REPORT INFORMATION
  Report Type: 
  Country: None (occurrence: None)
  Receive Date: 20100512
  Receipt Date: 20100512
  Transmission Date: 20101027
  Serious: Yes (Other)
  Sender: FDA-Public Use
  Company Number: None

PATIENT
  Age: 22 Year
  Sex: Female
  Weight: 61.6892 kg

DRUGS (1)
  1. MIRENA [Suspect]
     Indication: CONTRACEPTION
     Dosage: 20 MICROGRAMS LEVONORGESTRAL DAILY INTRA-UTERINE
     Route: 015
     Dates: start: 20100301

REACTIONS (1)
  - HYPOTHYROIDISM [None]
